FAERS Safety Report 21234335 (Version 2)
Quarter: 2022Q3

REPORT INFORMATION
  Report Type: Report from Study
  Country: US (occurrence: US)
  Receive Date: 20220819
  Receipt Date: 20220830
  Transmission Date: 20221027
  Serious: Yes (Life-Threatening, Other)
  Sender: FDA-Public Use
  Company Number: US-TAKEDA-2022TUS057296

PATIENT
  Sex: Male

DRUGS (1)
  1. VORTIOXETINE [Suspect]
     Active Substance: VORTIOXETINE
     Indication: Depression
     Dosage: 20 MILLIGRAM, QD
     Route: 048

REACTIONS (4)
  - Depression [Recovering/Resolving]
  - Withdrawal syndrome [Recovering/Resolving]
  - Nightmare [Recovering/Resolving]
  - Therapy interrupted [Recovering/Resolving]
